FAERS Safety Report 9778519 (Version 1)
Quarter: 2013Q4

REPORT INFORMATION
  Report Type: Spontaneous
  Country: US (occurrence: US)
  Receive Date: 20131223
  Receipt Date: 20131223
  Transmission Date: 20140711
  Serious: Yes (Hospitalization)
  Sender: FDA-Public Use
  Company Number: US-BAYER-2013-155921

PATIENT
  Age: 37 Year
  Sex: Female
  Weight: 59.41 kg

DRUGS (10)
  1. YAZ [Suspect]
  2. PROPOFOL [Concomitant]
     Dosage: UNK
     Dates: start: 20080326
  3. MIDAZOLAM [Concomitant]
     Dosage: 3.5 MG, UNK
     Dates: start: 20080326
  4. FENTANYL [Concomitant]
     Dosage: 75 ?G, UNK
     Dates: start: 20080326
  5. MARCAINE [Concomitant]
     Dosage: 050%
     Dates: start: 20080326
  6. XYLOCAINE [Concomitant]
     Dosage: 1%
     Dates: start: 20080326
  7. CELESTONE [Concomitant]
     Dosage: 2.5 ML, UNK
     Dates: start: 20080326
  8. VICODIN [Concomitant]
     Dosage: UNK
     Dates: start: 20080326
  9. AUGMENTIN [Concomitant]
  10. IBUPROFEN [Concomitant]

REACTIONS (2)
  - Pulmonary embolism [Recovering/Resolving]
  - Deep vein thrombosis [None]
